FAERS Safety Report 6192865-0 (Version None)
Quarter: 2009Q2

REPORT INFORMATION
  Report Type: 
  Country: None (occurrence: None)
  Receive Date: 20090514
  Receipt Date: 20090429
  Transmission Date: 20091009
  Serious: Yes (Other)
  Sender: FDA-Public Use
  Company Number: 2009SP001123

PATIENT
  Sex: Male

DRUGS (1)
  1. OMNARIS [Suspect]
     Dosage: 200 UG; QD; NASAL
     Route: 045

REACTIONS (1)
  - ANAPHYLACTIC SHOCK [None]
